FAERS Safety Report 17599288 (Version 1)
Quarter: 2020Q1

REPORT INFORMATION
  Report Type: Spontaneous
  Country: US (occurrence: US)
  Receive Date: 20200330
  Receipt Date: 20200330
  Transmission Date: 20200409
  Serious: Yes (Other)
  Sender: FDA-Public Use
  Company Number: None

PATIENT
  Age: 56 Year
  Sex: Female
  Weight: 58.5 kg

DRUGS (10)
  1. AMBIEN [Concomitant]
     Active Substance: ZOLPIDEM TARTRATE
  2. MELATONIN [Concomitant]
     Active Substance: MELATONIN
  3. ASCLERA [Suspect]
     Active Substance: POLIDOCANOL
     Indication: VARICOSE VEIN
     Dates: start: 20190905, end: 20190905
  4. OTC ANTIHISTAMINE [Concomitant]
  5. ESTRACE [Concomitant]
     Active Substance: ESTRADIOL
  6. ZEBET [Concomitant]
  7. FLAXSEED [Concomitant]
     Active Substance: FLAX SEED
  8. FISH OIL [Concomitant]
     Active Substance: FISH OIL
  9. ALATHEANINE [Concomitant]
  10. MULTIVITAMIN [Concomitant]
     Active Substance: VITAMINS

REACTIONS (6)
  - Gait disturbance [None]
  - Pain in extremity [None]
  - Meniscus injury [None]
  - Burning sensation [None]
  - Synovial rupture [None]
  - Tendonitis [None]

NARRATIVE: CASE EVENT DATE: 20190905
